FAERS Safety Report 18942653 (Version 4)
Quarter: 2021Q4

REPORT INFORMATION
  Report Type: Report from Study
  Country: FI (occurrence: FI)
  Receive Date: 20210225
  Receipt Date: 20211104
  Transmission Date: 20220303
  Serious: Yes (Hospitalization)
  Sender: FDA-Public Use
  Company Number: FI-NAPPMUNDI-GBR-2021-0083646

PATIENT
  Age: 75 Year
  Sex: Male

DRUGS (36)
  1. OXYCONTIN [Suspect]
     Active Substance: OXYCODONE HYDROCHLORIDE
     Indication: Cancer pain
     Dosage: 20 MG, Q12H
     Route: 048
     Dates: start: 20201221, end: 20201228
  2. OXYCONTIN [Suspect]
     Active Substance: OXYCODONE HYDROCHLORIDE
     Indication: Neuralgia
     Dosage: 80 MG, Q12H
     Route: 048
     Dates: start: 20201122
  3. OXYCONTIN [Suspect]
     Active Substance: OXYCODONE HYDROCHLORIDE
     Dosage: 60 MG, Q12H
     Route: 048
     Dates: start: 20201121
  4. OXYCONTIN [Suspect]
     Active Substance: OXYCODONE HYDROCHLORIDE
     Dosage: 40 MG, Q12H
     Route: 048
     Dates: start: 20201007
  5. OXYCONTIN [Suspect]
     Active Substance: OXYCODONE HYDROCHLORIDE
     Dosage: UNK, PRN
     Route: 048
     Dates: start: 20200819
  6. CYCLOPHOSPHAMIDE [Suspect]
     Active Substance: CYCLOPHOSPHAMIDE
     Indication: B-cell lymphoma
     Dosage: 300 MG/M2, DAILY
     Route: 042
     Dates: start: 20201111, end: 20201113
  7. FLUDARABINE [Suspect]
     Active Substance: FLUDARABINE PHOSPHATE
     Indication: B-cell lymphoma
     Dosage: 30 MG/M2, DAILY
     Route: 042
     Dates: start: 20201111, end: 20201113
  8. DEXAMETHASONE [Suspect]
     Active Substance: DEXAMETHASONE
     Indication: Muscular weakness
     Dosage: 10 MG, DAILY [6+4 MG, 1 IN 12 HOURS]
     Route: 048
     Dates: start: 20210123
  9. DEXAMETHASONE [Suspect]
     Active Substance: DEXAMETHASONE
     Indication: Cytokine release syndrome
     Dosage: 6 MG, Q12H
     Route: 048
     Dates: start: 20200118, end: 20210122
  10. DEXAMETHASONE [Suspect]
     Active Substance: DEXAMETHASONE
     Indication: Neurological symptom
     Dosage: 10 MG, Q12H
     Route: 048
     Dates: start: 20210115, end: 20210118
  11. DEXAMETHASONE [Suspect]
     Active Substance: DEXAMETHASONE
     Indication: Pyrexia
     Dosage: 4 MG, Q12H
     Route: 048
     Dates: start: 20201202, end: 20201203
  12. DEXAMETHASONE [Suspect]
     Active Substance: DEXAMETHASONE
     Indication: Central nervous system lymphoma
     Dosage: 6 MG, Q12H
     Route: 048
     Dates: start: 20201130, end: 20201201
  13. DEXAMETHASONE [Suspect]
     Active Substance: DEXAMETHASONE
     Indication: Neurotoxicity
     Dosage: 9 MG, Q8H
     Route: 048
     Dates: start: 20201129, end: 20201130
  14. DEXAMETHASONE [Suspect]
     Active Substance: DEXAMETHASONE
     Indication: Prophylaxis
     Dosage: 10 MG, Q8H
     Route: 042
     Dates: start: 20201128, end: 20201129
  15. DEXAMETHASONE [Suspect]
     Active Substance: DEXAMETHASONE
     Indication: Steroid therapy
     Dosage: 20 MG, Q8H
     Route: 042
     Dates: start: 20201126
  16. DEXAMETHASONE [Suspect]
     Active Substance: DEXAMETHASONE
     Dosage: 10 MG, Q8H
     Route: 042
     Dates: start: 20201125
  17. DEXAMETHASONE [Suspect]
     Active Substance: DEXAMETHASONE
     Dosage: 10 MG, Q24H
     Route: 042
     Dates: start: 20201121
  18. DEXAMETHASONE [Suspect]
     Active Substance: DEXAMETHASONE
     Dosage: 6 MG IN 24 H
     Route: 048
     Dates: start: 20210213
  19. TOCILIZUMAB [Suspect]
     Active Substance: TOCILIZUMAB
     Indication: Cytokine release syndrome
     Dosage: 760 MG, SINGLE
     Route: 042
     Dates: start: 20201121
  20. TOCILIZUMAB [Suspect]
     Active Substance: TOCILIZUMAB
     Indication: Pyrexia
  21. PREDNISOLONE [Concomitant]
     Active Substance: PREDNISOLONE
     Indication: Steroid therapy
     Dosage: 20 MG, Q24H
     Route: 048
  22. PREDNISOLONE [Concomitant]
     Active Substance: PREDNISOLONE
     Dosage: 10 MG, Q24H
     Route: 048
  23. PREDNISOLONE [Concomitant]
     Active Substance: PREDNISOLONE
     Dosage: 20 MG, Q24H
     Route: 048
     Dates: start: 20201210, end: 20201228
  24. PREDNISOLONE [Concomitant]
     Active Substance: PREDNISOLONE
     Dosage: 10 MG, Q24H
     Route: 048
     Dates: start: 20201204, end: 20201210
  25. FUROSEMIDE [Concomitant]
     Active Substance: FUROSEMIDE
     Indication: Oedema peripheral
     Dosage: 20 MG, Q24H
     Route: 048
     Dates: start: 20201215
  26. FUROSEMIDE [Concomitant]
     Active Substance: FUROSEMIDE
     Dosage: 20 MG, Q24H
     Route: 048
     Dates: start: 20201121
  27. FUROSEMIDE [Concomitant]
     Active Substance: FUROSEMIDE
     Dosage: 40 MG, Q24H
     Route: 048
     Dates: start: 20201118
  28. FUROSEMIDE [Concomitant]
     Active Substance: FUROSEMIDE
     Dosage: 20 MG, Q24H
     Route: 048
     Dates: start: 20201215, end: 20210111
  29. SULFAMETHOXAZOLE\TRIMETHOPRIM [Concomitant]
     Active Substance: SULFAMETHOXAZOLE\TRIMETHOPRIM
     Indication: Infection prophylaxis
     Dosage: 1 TABLET, 3/WEEK
     Route: 048
     Dates: start: 20200819
  30. PANTOPRAZOLE SODIUM [Concomitant]
     Active Substance: PANTOPRAZOLE SODIUM
     Indication: Prophylaxis
     Dosage: 40 MG, Q24H
     Route: 048
     Dates: start: 20201006
  31. CEFTRIAXONE                        /00672202/ [Concomitant]
     Indication: Prophylaxis
     Dosage: 2 G, Q24H
     Route: 042
     Dates: start: 20201121
  32. POLYETHYLENE GLYCOL 4000 [Concomitant]
     Active Substance: POLYETHYLENE GLYCOL 4000
     Indication: Constipation prophylaxis
     Dosage: 24 MG, Q12H
     Route: 048
     Dates: start: 20201120
  33. ONDANSETRON [Concomitant]
     Active Substance: ONDANSETRON
     Indication: Nausea
     Dosage: 16 MG, Q12H
     Route: 048
     Dates: start: 20201118
  34. LEVETIRACETAM [Concomitant]
     Active Substance: LEVETIRACETAM
     Indication: Neurotoxicity
     Dosage: 1000 MG, Q12H
     Route: 048
     Dates: start: 20201125
  35. FILGRASTIM [Concomitant]
     Active Substance: FILGRASTIM
     Indication: Neutropenia
     Dosage: 48000000 IU, Q24H
     Route: 058
     Dates: start: 20201125
  36. LISOCABTAGENE MARALEUCEL [Suspect]
     Active Substance: LISOCABTAGENE MARALEUCEL
     Indication: B-cell lymphoma
     Dosage: 1 X 10^8 CAR + T CELLS SINGLE
     Route: 042
     Dates: start: 20201119, end: 20201119

REACTIONS (6)
  - Muscular weakness [Recovered/Resolved with Sequelae]
  - Constipation [Recovered/Resolved]
  - Urinary retention [Unknown]
  - Tremor [Unknown]
  - Impaired self-care [Unknown]
  - Dizziness [Unknown]

NARRATIVE: CASE EVENT DATE: 20210110
